FAERS Safety Report 11714483 (Version 1)
Quarter: 2015Q4

REPORT INFORMATION
  Report Type: Spontaneous
  Country: US (occurrence: None)
  Receive Date: 20151106
  Receipt Date: 20151106
  Transmission Date: 20160304
  Serious: Yes (Other)
  Sender: FDA-Public Use
  Company Number: None

PATIENT
  Sex: Male

DRUGS (1)
  1. FUROSEMIDE TABLETS 40MG ROXANE [Suspect]
     Active Substance: FUROSEMIDE
     Route: 048

REACTIONS (2)
  - Fluid retention [None]
  - Urine output decreased [None]
